FAERS Safety Report 7335597-5 (Version None)
Quarter: 2011Q1

REPORT INFORMATION
  Report Type: 
  Country: None (occurrence: None)
  Receive Date: 20110301
  Receipt Date: 20110301
  Transmission Date: 20110831
  Serious: Yes (Other)
  Sender: FDA-Public Use
  Company Number: None

PATIENT
  Age: 25 Year
  Sex: Male
  Weight: 113.3993 kg

DRUGS (1)
  1. ULORIC [Suspect]
     Indication: GOUT
     Dosage: 40 MG DAILY PO
     Route: 048
     Dates: start: 20110210, end: 20110228

REACTIONS (2)
  - URTICARIA [None]
  - HYPERSENSITIVITY [None]
